FAERS Safety Report 4300482-X (Version None)
Quarter: 2004Q1

REPORT INFORMATION
  Report Type: 
  Country: None (occurrence: None)
  Receive Date: 20040218
  Receipt Date: 20040129
  Transmission Date: 20041129
  Serious: Yes (Other)
  Sender: FDA-Public Use
  Company Number: USA040158038

PATIENT
  Age: 9 Year
  Sex: Male

DRUGS (2)
  1. STRATTERA [Suspect]
     Indication: ATTENTION DEFICIT/HYPERACTIVITY DISORDER
     Dates: start: 20031201
  2. CONCERTA [Concomitant]

REACTIONS (5)
  - BLOOD GLUCOSE INCREASED [None]
  - EPILEPSY [None]
  - LUNG INFECTION [None]
  - PETIT MAL EPILEPSY [None]
  - TIC [None]
